FAERS Safety Report 11279926 (Version 1)
Quarter: 2015Q3

REPORT INFORMATION
  Report Type: Spontaneous
  Country: US (occurrence: None)
  Receive Date: 20150716
  Receipt Date: 20150716
  Transmission Date: 20151125
  Serious: Yes (Hospitalization, Disabling, Other)
  Sender: FDA-Public Use
  Company Number: None

PATIENT
  Age: 40 Year
  Sex: Female
  Weight: 56.7 kg

DRUGS (14)
  1. NOVOLOG INSULIN [Concomitant]
  2. ZANEXTRA [Concomitant]
     Active Substance: ENALAPRIL MALEATE\LERCANIDIPINE HYDROCHLORIDE
  3. OXYCODONE [Concomitant]
     Active Substance: OXYCODONE
  4. CANE [Concomitant]
  5. VITAMIN C [Concomitant]
     Active Substance: ASCORBIC ACID
  6. NECK BRACE [Concomitant]
  7. VITAMIN B12 [Concomitant]
     Active Substance: CYANOCOBALAMIN
  8. KNEE BRACE [Concomitant]
  9. LEVAQUIN [Suspect]
     Active Substance: LEVOFLOXACIN
     Indication: PHARYNGITIS
     Route: 048
  10. INVOKANA [Concomitant]
     Active Substance: CANAGLIFLOZIN
  11. KALETRA [Concomitant]
     Active Substance: LOPINAVIR\RITONAVIR
  12. METFORMIN [Suspect]
     Active Substance: METFORMIN HYDROCHLORIDE
  13. AVELOX [Suspect]
     Active Substance: MOXIFLOXACIN HYDROCHLORIDE
     Indication: URINARY TRACT INFECTION
     Route: 048
  14. ADVAIR HFA [Concomitant]
     Active Substance: FLUTICASONE PROPIONATE\SALMETEROL XINAFOATE

REACTIONS (5)
  - Hypersensitivity [None]
  - Dehydration [None]
  - Musculoskeletal stiffness [None]
  - Diarrhoea [None]
  - Heart rate increased [None]
